FAERS Safety Report 5360166-6 (Version None)
Quarter: 2007Q2

REPORT INFORMATION
  Report Type: 
  Country: None (occurrence: None)
  Receive Date: 20070618
  Receipt Date: 20070607
  Transmission Date: 20071010
  Serious: No
  Sender: FDA-Public Use
  Company Number: PHEH2007US05628

PATIENT
  Age: 26 Year
  Sex: Female
  Weight: 72.562 kg

DRUGS (2)
  1. HORMONAL CONTRACEPTIVES [Concomitant]
     Indication: CONTRACEPTION
     Dosage: UNK, QD
     Route: 048
     Dates: start: 20050301
  2. ZADITOR [Suspect]
     Indication: EYE ALLERGY
     Dosage: 1 GTT OU QD
     Dates: start: 20070315, end: 20070415

REACTIONS (1)
  - EOSINOPHIL COUNT DECREASED [None]
